FAERS Safety Report 8535941-7 (Version None)
Quarter: 2012Q3

REPORT INFORMATION
  Report Type: 
  Country: None (occurrence: None)
  Receive Date: 20120725
  Receipt Date: 20120720
  Transmission Date: 20120928
  Serious: Yes (Hospitalization, Other)
  Sender: FDA-Public Use
  Company Number: PHBS2006BR12084

PATIENT
  Sex: Male
  Weight: 82 kg

DRUGS (35)
  1. FORMOTEROL FUMARATE [Suspect]
     Dosage: 12/200MCG (MORE THAN 2 TIMES PER DAY)
  2. FORMOTEROL FUMARATE [Suspect]
     Dosage: 12/400 MCG EVERY 12 HOURS
  3. HYDROCHLOROTHIAZIDE [Concomitant]
     Dosage: 1 DF, Q8H
  4. ALDACTONE [Concomitant]
     Indication: CARDIAC FAILURE
     Dosage: 1 DF, PER DAY
  5. FUROSEMIDE [Concomitant]
     Indication: OEDEMA PERIPHERAL
     Dosage: UNK UKN, UNK
  6. METFORMIN HYDROCHLORIDE [Concomitant]
     Indication: DIABETES MELLITUS
     Dosage: UNK UKN, BID
  7. FORMOTEROL FUMARATE [Suspect]
     Dosage: 12/400MCG (AT EVERY 12 HOURS)
  8. FORMOTEROL FUMARATE [Suspect]
     Dosage: 12/400 MCG EVERY 12 HOURS
  9. AMIODARONE HYDROCHLORIDE [Concomitant]
     Dosage: 1 DF, (1 TABLET IN MORNING)
  10. RANITIDINE [Concomitant]
     Indication: NERVOUSNESS
  11. FORMOTEROL FUMARATE [Suspect]
     Dosage: 12/400 MCG, EVERY 12 HOURS
  12. ALDACTONE [Concomitant]
     Indication: CARDIOMEGALY
     Dosage: 0.5 DF, UNK
     Route: 048
  13. ALDACTONE [Concomitant]
     Indication: CARDIAC DISORDER
     Dosage: 1 DF, QD
  14. FORMOTEROL FUMARATE [Suspect]
  15. ACETAMINOPHEN [Concomitant]
     Indication: TOOTHACHE
     Dosage: 40 DRP, UNK
  16. AMIODARONE HYDROCHLORIDE [Concomitant]
     Indication: ARRHYTHMIA
     Dosage: 200 MG, (1 TABLET IN THE MANE)
     Route: 048
     Dates: start: 20060601
  17. FORMOTEROL FUMARATE [Suspect]
     Dosage: 12/400 MCG
     Dates: start: 20090819
  18. CAPTOPRIL [Concomitant]
     Indication: HYPERTENSION
     Dosage: UNK UKN, UNK
     Route: 048
     Dates: end: 20060601
  19. ASPIRIN [Concomitant]
     Indication: BONE DISORDER
     Dosage: UNK (ONCE A DAY)
     Dates: start: 20110101
  20. FORMOTEROL FUMARATE [Suspect]
     Indication: ASTHMA
     Dosage: 12/200 MCG, (1 INHALATION EVERY 12 HOURS)
     Dates: start: 20040101
  21. FORMOTEROL FUMARATE [Suspect]
     Dosage: 12/400 MCG
     Dates: start: 20071231, end: 20080330
  22. ENALAPRIL MALEATE [Concomitant]
     Indication: HYPERTENSION
     Dosage: 12.5 MG/ 20 MG, 2 TABLETS PER DAY
     Route: 048
     Dates: start: 20030101
  23. DIAZEPAM [Concomitant]
     Indication: CEREBRAL DISORDER
     Dosage: 10 MG, UNK
     Route: 048
     Dates: start: 19960101
  24. FLUOXETINE HCL [Concomitant]
     Indication: ANXIETY
  25. FORMOTEROL FUMARATE [Suspect]
     Dosage: 12/200 MCG
  26. DIAZEPAM [Concomitant]
     Indication: NERVOUSNESS
     Dosage: 1 DF, (NIGHT)
  27. DIAZEPAM [Concomitant]
     Indication: INSOMNIA
  28. FLUOXETINE HCL [Concomitant]
     Indication: STRESS
     Dosage: 20 MG, UNK
  29. LOSARTAN POTASSIUM [Concomitant]
     Indication: HYPERTENSION
     Dosage: 1 DF, (1 TABLET EVERY 8 YEARS)
     Dates: start: 20110101
  30. FORMOTEROL FUMARATE [Suspect]
     Dosage: 12/200MCG
  31. HYDROCHLOROTHIAZIDE [Concomitant]
     Indication: HYPERTENSION
     Dosage: 1 25 MG TABLET PER DAY
     Route: 048
  32. DIAZEPAM [Concomitant]
     Indication: NERVOUS SYSTEM DISORDER
     Dosage: 10 MG, (1 TABLET AT NOCTE)
     Route: 048
  33. RANITIDINE [Concomitant]
     Indication: GASTRITIS
     Dosage: UNK UKN, QD
  34. FLUOXETINE HCL [Concomitant]
     Indication: ANGER
  35. OMEPRAZOLE [Concomitant]
     Indication: ABDOMINAL PAIN UPPER
     Dosage: 1 DF, (1 TABLET A DAY)

REACTIONS (41)
  - VOMITING [None]
  - CARDIAC DISORDER [None]
  - BLOOD PRESSURE FLUCTUATION [None]
  - INCORRECT DOSE ADMINISTERED [None]
  - WEIGHT INCREASED [None]
  - INFLUENZA [None]
  - ARRHYTHMIA [None]
  - CARDIOVASCULAR DISORDER [None]
  - ELECTROCARDIOGRAM ABNORMAL [None]
  - BLOOD PRESSURE INCREASED [None]
  - CONFUSIONAL STATE [None]
  - WRONG TECHNIQUE IN DRUG USAGE PROCESS [None]
  - ASTHMA [None]
  - DYSPHONIA [None]
  - LEFT VENTRICULAR DYSFUNCTION [None]
  - OEDEMA PERIPHERAL [None]
  - PLEURAL EFFUSION [None]
  - CARDIOMEGALY [None]
  - DYSPNOEA [None]
  - PARAESTHESIA [None]
  - ABDOMINAL PAIN UPPER [None]
  - FEELING ABNORMAL [None]
  - DRUG INEFFECTIVE [None]
  - WEIGHT DECREASED [None]
  - CHEST PAIN [None]
  - HAEMOTHORAX [None]
  - TOOTHACHE [None]
  - DEVICE MALFUNCTION [None]
  - NASOPHARYNGITIS [None]
  - HEART RATE INCREASED [None]
  - DIABETES MELLITUS [None]
  - ASTHENIA [None]
  - DIZZINESS [None]
  - FATIGUE [None]
  - HYPOAESTHESIA ORAL [None]
  - ABDOMINAL DISCOMFORT [None]
  - PALPITATIONS [None]
  - DRY MOUTH [None]
  - PULMONARY FUNCTION TEST DECREASED [None]
  - COUGH [None]
  - SOMNOLENCE [None]
